FAERS Safety Report 12953616 (Version 1)
Quarter: 2016Q4

REPORT INFORMATION
  Report Type: Spontaneous
  Country: None (occurrence: US)
  Receive Date: 20161117
  Receipt Date: 20161117
  Transmission Date: 20170207
  Serious: No
  Sender: FDA-Public Use
  Company Number: US-AMPHASTAR PHARMACEUTICALS, INC.-1059732

PATIENT
  Age: 55 Year
  Sex: Male
  Weight: 91.36 kg

DRUGS (5)
  1. CRESTOR [Concomitant]
     Active Substance: ROSUVASTATIN CALCIUM
  2. XARELTO [Concomitant]
     Active Substance: RIVAROXABAN
     Route: 050
  3. TRICOR [Concomitant]
     Active Substance: FENOFIBRATE
  4. ENOXAPARIN SODIUM. [Suspect]
     Active Substance: ENOXAPARIN SODIUM
     Indication: PULMONARY THROMBOSIS
     Route: 058
  5. TYLENOL [Concomitant]
     Active Substance: ACETAMINOPHEN

REACTIONS (4)
  - Injection site bruising [Recovering/Resolving]
  - Injection site haemorrhage [Unknown]
  - Injection site haematoma [Recovered/Resolved]
  - Injection site nodule [Unknown]
